FAERS Safety Report 14471417 (Version 4)
Quarter: 2022Q3

REPORT INFORMATION
  Report Type: Spontaneous
  Country: DK (occurrence: DK)
  Receive Date: 20180131
  Receipt Date: 20220721
  Transmission Date: 20221027
  Serious: Yes (Other)
  Sender: FDA-Public Use
  Company Number: PHHY2017DK200017

PATIENT
  Sex: Female

DRUGS (11)
  1. METHOTREXATE [Suspect]
     Active Substance: METHOTREXATE
     Indication: Gestational trophoblastic tumour
     Dosage: 10 MG, REPEATED EVERY 4 WEEKS
     Route: 048
  2. METHOTREXATE [Suspect]
     Active Substance: METHOTREXATE
     Dosage: 2.5 MG, QID
     Route: 048
  3. METHOTREXATE [Suspect]
     Active Substance: METHOTREXATE
     Dosage: 2.5 MG, QD
     Route: 065
  4. CISPLATIN [Suspect]
     Active Substance: CISPLATIN
     Indication: Gestational trophoblastic tumour
     Dosage: 20 MG/M2, ON DAYS 1-5, REPEATED EVERY 3 WEEKS
     Route: 042
  5. CISPLATIN [Suspect]
     Active Substance: CISPLATIN
     Dosage: 50 MG/M2, Q3W, DAY 1-2
     Route: 065
     Dates: start: 2010
  6. ETOPOSIDE [Suspect]
     Active Substance: ETOPOSIDE
     Indication: Gestational trophoblastic tumour
     Dosage: 100 MG/M2, QD, ADMINISTERED ON DAYS 1-5 IN 3 WEEKS CYCLE
     Route: 065
  7. ETOPOSIDE [Suspect]
     Active Substance: ETOPOSIDE
     Dosage: 165 MG/M2, Q3W, DAY 1-3
     Route: 042
     Dates: start: 2010
  8. BLEOMYCIN [Suspect]
     Active Substance: BLEOMYCIN SULFATE
     Indication: Gestational trophoblastic tumour
     Dosage: 30000 IU, Q3W, ADMINISTERED ON DAYS 2,9 AND 16 IN EVERY 3 WEEKS CYCLE.
     Route: 065
  9. LEUCOVORIN CALCIUM [Concomitant]
     Active Substance: LEUCOVORIN CALCIUM
     Indication: Drug toxicity prophylaxis
     Dosage: 4 ML
     Route: 065
  10. LEUCOVORIN CALCIUM [Concomitant]
     Active Substance: LEUCOVORIN CALCIUM
     Dosage: 1 ML, Q4W
     Route: 065
  11. DACTINOMYCIN [Concomitant]
     Active Substance: DACTINOMYCIN
     Indication: Product used for unknown indication
     Dosage: 0.5 MG, FOR 5 DAYS  (SCHEDULE REPEATED EVERY 4 WEEKS (ALTERNATIVELY EVERY 3 WEEKS)
     Route: 065

REACTIONS (4)
  - Respiratory symptom [Unknown]
  - Anaemia [Unknown]
  - Drug resistance [Unknown]
  - Product use in unapproved indication [Unknown]
